FAERS Safety Report 23784262 (Version 1)
Quarter: 2024Q2

REPORT INFORMATION
  Report Type: Spontaneous
  Country: US (occurrence: None)
  Receive Date: 20240425
  Receipt Date: 20240425
  Transmission Date: 20240716
  Serious: No
  Sender: FDA-Public Use
  Company Number: None

PATIENT
  Age: 43 Year
  Sex: Female
  Weight: 48 kg

DRUGS (10)
  1. TRIKAFTA [Suspect]
     Active Substance: ELEXACAFTOR\IVACAFTOR\TEZACAFTOR
     Indication: Cystic fibrosis
     Dosage: FREQUENCY : TWICE A DAY;?
     Route: 048
  2. Aztreonam 75mg nebulized solution [Concomitant]
  3. Budesonide 0.5mg/2mL intranasal rinse [Concomitant]
  4. Cholecalciferol 10,000 units [Concomitant]
  5. HUMALOG [Concomitant]
     Active Substance: INSULIN LISPRO
  6. Xopenexx [Concomitant]
  7. MINERALS\VITAMINS [Concomitant]
     Active Substance: MINERALS\VITAMINS
  8. ZENPEP [Concomitant]
     Active Substance: PANCRELIPASE AMYLASE\PANCRELIPASE LIPASE\PANCRELIPASE PROTEASE
  9. Sodium chloride 3% nebulized solution [Concomitant]
  10. Ayr saline 0.65% [Concomitant]

REACTIONS (1)
  - Photophobia [None]

NARRATIVE: CASE EVENT DATE: 20240424
